FAERS Safety Report 7633547-5 (Version None)
Quarter: 2011Q3

REPORT INFORMATION
  Report Type: 
  Country: None (occurrence: None)
  Receive Date: 20110725
  Receipt Date: 20110713
  Transmission Date: 20111222
  Serious: Yes (Other)
  Sender: FDA-Public Use
  Company Number: DE-UCBSA-034510

PATIENT
  Sex: Female
  Weight: 63 kg

DRUGS (5)
  1. CALCIVIT [Concomitant]
     Indication: OSTEOPOROSIS
     Dosage: SINGLE DOSE: 400 IE; TOTAL DAILY DOSE: 600
     Route: 048
  2. VIMPAT [Suspect]
     Indication: EPILEPSY
     Route: 048
     Dates: start: 20110216, end: 20110410
  3. ALENDRONIC ACID [Concomitant]
     Indication: OSTEOPOROSIS
     Route: 048
  4. OMEPRAZOLE [Concomitant]
     Indication: DYSPEPSIA
     Route: 048
  5. KEPPRA [Suspect]
     Indication: EPILEPSY
     Route: 048
     Dates: start: 20090101

REACTIONS (3)
  - CONVULSION [None]
  - BLEPHAROSPASM [None]
  - DYSTONIA [None]
